FAERS Safety Report 7163273-0 (Version None)
Quarter: 2010Q4

REPORT INFORMATION
  Report Type: 
  Country: None (occurrence: None)
  Receive Date: 20101215
  Receipt Date: 20100402
  Transmission Date: 20110411
  Serious: No
  Sender: FDA-Public Use
  Company Number: US-ABBOTT-10P-163-0625803-00

PATIENT
  Sex: Male
  Weight: 73 kg

DRUGS (8)
  1. HYTRIN [Suspect]
     Indication: PRODUCT USED FOR UNKNOWN INDICATION
     Route: 048
     Dates: start: 20091105, end: 20100119
  2. BLINDED STUDY DRUG (CELECOXIB, IBUPROFEN, NAPROXEN OR PLACEBO) [Suspect]
     Indication: OSTEOARTHRITIS
     Route: 048
     Dates: start: 20080126
  3. BLINDED STUDY DRUG (CELECOXIB, IBUPROFEN, NAPROXEN OR PLACEBO) [Suspect]
     Indication: RHEUMATOID ARTHRITIS
  4. NEXIUM [Concomitant]
     Indication: PRODUCT USED FOR UNKNOWN INDICATION
     Dates: start: 20080126
  5. BENICAR HCT [Concomitant]
     Indication: PRODUCT USED FOR UNKNOWN INDICATION
     Dates: start: 20090901
  6. METOPROLOL TARTRATE [Concomitant]
     Indication: PRODUCT USED FOR UNKNOWN INDICATION
     Dates: start: 20091101
  7. NORVASC [Concomitant]
     Indication: PRODUCT USED FOR UNKNOWN INDICATION
     Dates: start: 20091101
  8. ZOCOR [Concomitant]
     Indication: PRODUCT USED FOR UNKNOWN INDICATION
     Dates: start: 20071002

REACTIONS (2)
  - AORTIC STENOSIS [None]
  - HYPOTENSION [None]
